FAERS Safety Report 7724008-3 (Version None)
Quarter: 2011Q3

REPORT INFORMATION
  Report Type: 
  Country: None (occurrence: None)
  Receive Date: 20110901
  Receipt Date: 20110726
  Transmission Date: 20111222
  Serious: No
  Sender: FDA-Public Use
  Company Number: US-PFIZER INC-2011146045

PATIENT
  Sex: Female
  Weight: 73.5 kg

DRUGS (4)
  1. PRILOSEC [Concomitant]
     Indication: HERNIA
     Dosage: UNK
     Dates: start: 19960101
  2. DIAZEPAM [Concomitant]
     Indication: MUSCLE DISORDER
     Dosage: 5 MG, AS NEEDED
     Dates: start: 19800101
  3. PREMARIN [Suspect]
     Indication: HORMONE REPLACEMENT THERAPY
     Dosage: 0.625 MG, 1X/DAY
     Route: 048
     Dates: start: 19970101
  4. PREMARIN [Suspect]
     Dosage: 0.3 MG, 1X/DAY
     Route: 048
     Dates: start: 20010101

REACTIONS (4)
  - CONFUSIONAL STATE [None]
  - FEELING ABNORMAL [None]
  - IRRITABILITY [None]
  - HOT FLUSH [None]
